FAERS Safety Report 15775222 (Version 1)
Quarter: 2018Q4

REPORT INFORMATION
  Report Type: Report from Study
  Country: IT (occurrence: IT)
  Receive Date: 20181231
  Receipt Date: 20181231
  Transmission Date: 20190205
  Serious: Yes (Life-Threatening, Hospitalization, Other)
  Sender: FDA-Public Use
  Company Number: IT-INVENTIA-000263

PATIENT
  Age: 83 Year
  Sex: Female

DRUGS (5)
  1. FUROSEMIDE. [Concomitant]
     Active Substance: FUROSEMIDE
  2. CANRENOIC ACID [Concomitant]
     Active Substance: CANRENOIC ACID
  3. REPAGLINIDE. [Concomitant]
     Active Substance: REPAGLINIDE
  4. METFORMIN [Suspect]
     Active Substance: METFORMIN HYDROCHLORIDE
     Indication: TYPE 2 DIABETES MELLITUS
     Dosage: 1000 MG B.I.D
  5. BISOPROLOL [Concomitant]
     Active Substance: BISOPROLOL

REACTIONS (5)
  - Pseudomonas infection [Unknown]
  - Lactic acidosis [Unknown]
  - Proteus infection [Unknown]
  - Acute kidney injury [Unknown]
  - Enterococcal infection [Unknown]
